FAERS Safety Report 6623960-7 (Version None)
Quarter: 2010Q1

REPORT INFORMATION
  Report Type: 
  Country: None (occurrence: None)
  Receive Date: 20100304
  Receipt Date: 20100217
  Transmission Date: 20100710
  Serious: Yes (Hospitalization)
  Sender: FDA-Public Use
  Company Number: 2009000927

PATIENT
  Age: 58 Year
  Sex: Male
  Weight: 67 kg

DRUGS (6)
  1. ERLOTINIB              (ERLOTINIB) [Suspect]
     Indication: NON-SMALL CELL LUNG CANCER
     Dosage: 150 MG, QD, ORAL
     Route: 048
     Dates: start: 20090219, end: 20090826
  2. OXYCONTIN [Concomitant]
  3. LOXOPROFEN SODIUM        (LOXOPROFEN SODIUM) [Concomitant]
  4. SELBEX            (TEPRENONE) [Concomitant]
  5. MECOBALAMIN       (MECOBALAMIN) [Concomitant]
  6. OXINORM         (ORGOTEIN) [Concomitant]

REACTIONS (1)
  - PNEUMOTHORAX [None]
